FAERS Safety Report 8439561-4 (Version None)
Quarter: 2012Q2

REPORT INFORMATION
  Report Type: 
  Country: None (occurrence: None)
  Receive Date: 20120615
  Receipt Date: 20120607
  Transmission Date: 20120825
  Serious: Yes (Hospitalization, Other)
  Sender: FDA-Public Use
  Company Number: ES-JNJFOC-20110708566

PATIENT
  Age: 35 Year
  Sex: Male
  Weight: 59.7 kg

DRUGS (30)
  1. REMICADE [Suspect]
     Route: 042
     Dates: start: 20110418
  2. LEUCOVORIN CALCIUM [Concomitant]
     Indication: ANAEMIA PROPHYLAXIS
     Route: 048
     Dates: start: 20100401
  3. BUTYLSCOPOLAMINE [Concomitant]
     Indication: GASTROINTESTINAL MOTILITY DISORDER
     Route: 048
  4. REMICADE [Suspect]
     Indication: CROHN'S DISEASE
     Route: 042
     Dates: start: 20100419
  5. REMICADE [Suspect]
     Route: 042
     Dates: start: 20100503
  6. REMICADE [Suspect]
     Route: 042
     Dates: start: 20100531
  7. IRON [Concomitant]
     Route: 048
  8. REMICADE [Suspect]
     Route: 042
     Dates: start: 20110309
  9. REMICADE [Suspect]
     Route: 042
     Dates: start: 20100419
  10. REMICADE [Suspect]
     Route: 042
     Dates: start: 20110530
  11. AZATHIOPRINE [Concomitant]
     Route: 048
  12. ISONIAZID W/PYRIDOXINE [Concomitant]
     Dosage: DOSE 300/50
  13. REMICADE [Suspect]
     Route: 042
     Dates: start: 20110530
  14. REMICADE [Suspect]
     Route: 042
     Dates: start: 20110112
  15. REMICADE [Suspect]
     Route: 042
     Dates: start: 20100531
  16. REMICADE [Suspect]
     Route: 042
     Dates: start: 20101201
  17. MESALAMINE [Concomitant]
  18. REMICADE [Suspect]
     Route: 042
     Dates: start: 20101020
  19. REMICADE [Suspect]
     Route: 042
     Dates: start: 20101201
  20. REMICADE [Suspect]
     Route: 042
     Dates: start: 20100503
  21. AZATHIOPRINE [Concomitant]
     Indication: CROHN'S DISEASE
     Route: 048
  22. REMICADE [Suspect]
     Route: 042
     Dates: start: 20110418
  23. REMICADE [Suspect]
     Route: 042
     Dates: start: 20110112
  24. REMICADE [Suspect]
     Route: 042
     Dates: start: 20101103
  25. PANTOPRAZOLE [Concomitant]
     Indication: GASTROINTESTINAL DISORDER THERAPY
     Route: 048
  26. LORAZEPAM [Concomitant]
     Indication: NERVOUSNESS
     Route: 048
  27. RIFAMPICIN [Concomitant]
  28. REMICADE [Suspect]
     Route: 042
     Dates: start: 20101103
  29. REMICADE [Suspect]
     Indication: COLITIS ULCERATIVE
     Route: 042
     Dates: start: 20110309
  30. REMICADE [Suspect]
     Route: 042
     Dates: start: 20101020

REACTIONS (5)
  - COLECTOMY TOTAL [None]
  - DEEP VEIN THROMBOSIS [None]
  - TUBERCULOSIS [None]
  - VENOUS THROMBOSIS [None]
  - COLITIS ULCERATIVE [None]
